FAERS Safety Report 9398024 (Version 1)
Quarter: 2013Q3

REPORT INFORMATION
  Report Type: Spontaneous
  Country: US (occurrence: US)
  Receive Date: 20130712
  Receipt Date: 20130712
  Transmission Date: 20140515
  Serious: Yes (Other)
  Sender: FDA-Public Use
  Company Number: PHHY2013US071325

PATIENT
  Age: 90 Year
  Sex: Male

DRUGS (9)
  1. GALANTAMINE [Suspect]
     Indication: DEMENTIA ALZHEIMER^S TYPE
     Dosage: 4 MG, BID
  2. GALANTAMINE [Suspect]
     Dosage: 8 MG, BID
  3. ATENOLOL [Concomitant]
     Dosage: 50 MG DAILY
  4. CALCIUM + VITAMIN D [Concomitant]
     Dosage: 1 DF, BID
  5. HYDROCHLOROTHIAZIDE [Concomitant]
     Dosage: 25 MG, QD
  6. LOSARTAN [Concomitant]
     Dosage: 50 MG, QD
  7. OMEPRAZOLE [Concomitant]
     Dosage: 20 MG, BID
  8. SIMVASTATIN [Concomitant]
     Dosage: 80 MG DAILY
  9. ASPIRIN [Concomitant]
     Dosage: 81 MG, QD

REACTIONS (4)
  - Nightmare [Recovered/Resolved]
  - Anxiety [Recovered/Resolved]
  - Flushing [Recovered/Resolved]
  - Dizziness [Recovered/Resolved]
